FAERS Safety Report 6817516-0 (Version None)
Quarter: 2010Q3

REPORT INFORMATION
  Report Type: 
  Country: None (occurrence: None)
  Receive Date: 20100706
  Receipt Date: 20100628
  Transmission Date: 20110219
  Serious: Yes (Hospitalization)
  Sender: FDA-Public Use
  Company Number: B0663313A

PATIENT
  Age: 77 Year
  Sex: Female
  Weight: 39 kg

DRUGS (2)
  1. ARIXTRA [Suspect]
     Indication: THROMBOPHLEBITIS
     Dosage: 7.5MG PER DAY
     Route: 058
     Dates: start: 20100619, end: 20100626
  2. PREVISCAN [Suspect]
     Indication: THROMBOPHLEBITIS
     Dosage: .25TAB PER DAY
     Route: 048
     Dates: start: 20100619

REACTIONS (2)
  - OVERDOSE [None]
  - RECTAL HAEMORRHAGE [None]
